FAERS Safety Report 13586509 (Version 1)
Quarter: 2017Q2

REPORT INFORMATION
  Report Type: Spontaneous
  Country: US (occurrence: US)
  Receive Date: 20170525
  Receipt Date: 20170525
  Transmission Date: 20170830
  Serious: No
  Sender: FDA-Public Use
  Company Number: None

PATIENT
  Sex: Female

DRUGS (1)
  1. HUMIRA [Suspect]
     Active Substance: ADALIMUMAB
     Route: 058
     Dates: start: 20161116, end: 20170524

REACTIONS (5)
  - Dry skin [None]
  - Injection site erythema [None]
  - Pruritus [None]
  - Rash [None]
  - Drug ineffective [None]
